FAERS Safety Report 4744461-7 (Version None)
Quarter: 2005Q3

REPORT INFORMATION
  Report Type: 
  Country: None (occurrence: None)
  Receive Date: 20050809
  Receipt Date: 20050801
  Transmission Date: 20060218
  Serious: Yes (Hospitalization, Other)
  Sender: FDA-Public Use
  Company Number: 2005109677

PATIENT
  Sex: Female

DRUGS (3)
  1. ZYRTEC [Suspect]
     Indication: ILL-DEFINED DISORDER
  2. NEURONTIN [Suspect]
     Indication: ILL-DEFINED DISORDER
  3. ZOLOFT [Suspect]
     Indication: ILL-DEFINED DISORDER

REACTIONS (5)
  - ANKLE FRACTURE [None]
  - FALL [None]
  - OSTEOPOROSIS [None]
  - STAPHYLOCOCCAL INFECTION [None]
  - UPPER LIMB FRACTURE [None]
